FAERS Safety Report 9253672 (Version 3)
Quarter: 2014Q4

REPORT INFORMATION
  Report Type: Report from Study
  Country: DE (occurrence: DE)
  Receive Date: 20130425
  Receipt Date: 20141211
  Transmission Date: 20150529
  Serious: Yes (Life-Threatening, Hospitalization)
  Sender: FDA-Public Use
  Company Number: DE-ROCHE-1215501

PATIENT
  Age: 38 Year
  Sex: Female
  Weight: 65 kg

DRUGS (29)
  1. PEGINTERFERON ALFA-2A [Suspect]
     Active Substance: PEGINTERFERON ALFA-2A
     Indication: HEPATITIS C
     Route: 058
     Dates: start: 20130415, end: 20140317
  2. AMPHO MORONAL [Concomitant]
     Route: 065
     Dates: start: 20130610
  3. RIBAVIRIN. [Suspect]
     Active Substance: RIBAVIRIN
     Indication: HEPATITIS C
     Route: 048
     Dates: start: 20130321, end: 20140317
  4. CEFUROXIM [Concomitant]
     Active Substance: CEFUROXIME
     Route: 065
     Dates: start: 20130603, end: 20130609
  5. AZITHROMYCIN [Concomitant]
     Active Substance: AZITHROMYCIN ANHYDROUS
     Route: 065
     Dates: start: 20130627, end: 20130629
  6. L THYROXIN BETA [Concomitant]
     Route: 065
     Dates: start: 20130627
  7. METAMIZOL [Concomitant]
     Active Substance: METAMIZOLE SODIUM
     Route: 065
     Dates: start: 20130627
  8. BUDESONIDE EASYHALER [Concomitant]
     Route: 065
     Dates: start: 20140331
  9. OMEPRAZOL [Concomitant]
     Active Substance: OMEPRAZOLE
     Route: 065
     Dates: start: 20130503
  10. AMPHO MORONAL [Concomitant]
     Route: 065
     Dates: start: 20131230
  11. LOTRIDERM [Concomitant]
     Active Substance: BETAMETHASONE DIPROPIONATE\CLOTRIMAZOLE
     Route: 065
     Dates: start: 20130610
  12. FUCICORT [Concomitant]
     Active Substance: BETAMETHASONE VALERATE\FUSIDIC ACID
     Route: 065
     Dates: start: 20130715
  13. VIVINOX [Concomitant]
     Route: 065
     Dates: start: 20130909
  14. AZITHROMYCIN [Concomitant]
     Active Substance: AZITHROMYCIN ANHYDROUS
     Route: 065
     Dates: start: 20130712, end: 20140714
  15. IBUPROFEN. [Concomitant]
     Active Substance: IBUPROFEN
     Route: 065
  16. L THYROXIN BETA [Concomitant]
     Route: 065
     Dates: start: 20131203
  17. L THYROXIN BETA [Concomitant]
     Route: 065
     Dates: start: 20130820, end: 20131202
  18. LOPERAMID [Concomitant]
     Active Substance: LOPERAMIDE
     Route: 065
     Dates: start: 20130603
  19. UNACID [Concomitant]
     Active Substance: AMPICILLIN SODIUM\SULBACTAM SODIUM
     Route: 065
     Dates: start: 20140324, end: 20140328
  20. BETAGALEN [Concomitant]
     Route: 065
     Dates: start: 20130426
  21. L THYROXIN BETA [Concomitant]
     Route: 065
     Dates: start: 20130722, end: 20130819
  22. BEPANTHEN [Concomitant]
     Active Substance: DEXPANTHENOL
     Route: 065
     Dates: start: 20130603
  23. VITAMIN D3 [Concomitant]
     Active Substance: CHOLECALCIFEROL
     Route: 048
     Dates: start: 20130320, end: 20130415
  24. AZITHROMYCIN [Concomitant]
     Active Substance: AZITHROMYCIN ANHYDROUS
     Route: 065
     Dates: start: 20130527, end: 20130529
  25. MIRTAZAPIN [Concomitant]
     Active Substance: MIRTAZAPINE
     Route: 065
     Dates: start: 20130402
  26. AZITHROMYCIN [Concomitant]
     Active Substance: AZITHROMYCIN ANHYDROUS
     Route: 065
     Dates: start: 20130503, end: 20130505
  27. L THYROXIN BETA [Concomitant]
     Route: 065
     Dates: start: 20131202
  28. DEXAMYTREX [Concomitant]
     Route: 065
     Dates: start: 20130712
  29. RISPERIDON [Concomitant]
     Active Substance: RISPERIDONE
     Route: 065
     Dates: start: 20140401, end: 20140408

REACTIONS (7)
  - Hypersensitivity [Recovered/Resolved]
  - Muscle spasms [Recovered/Resolved]
  - Hypotension [Recovered/Resolved]
  - Bradycardia [Recovered/Resolved]
  - Nausea [Recovered/Resolved]
  - Syncope [Recovered/Resolved]
  - Circulatory collapse [Recovered/Resolved]

NARRATIVE: CASE EVENT DATE: 20130415
